FAERS Safety Report 5978483-5 (Version None)
Quarter: 2008Q4

REPORT INFORMATION
  Report Type: 
  Country: None (occurrence: None)
  Receive Date: 20081204
  Receipt Date: 20081126
  Transmission Date: 20090506
  Serious: Yes (Hospitalization)
  Sender: FDA-Public Use
  Company Number: JP-ABBOTT-08P-087-0480322-00

PATIENT
  Age: 70 Year
  Sex: Male

DRUGS (7)
  1. LEUPROLIDE ACETATE [Suspect]
     Indication: PROSTATE CANCER STAGE IV
     Route: 058
     Dates: start: 20061211
  2. BICALUTAMIDE [Concomitant]
     Indication: PROSTATE CANCER STAGE IV
     Route: 048
     Dates: start: 20061211
  3. SPIRONOLACTONE [Concomitant]
     Indication: CIRRHOSIS ALCOHOLIC
     Route: 048
  4. FUROSEMIDE [Concomitant]
     Indication: CIRRHOSIS ALCOHOLIC
     Route: 048
  5. FALKAMIN [Concomitant]
     Indication: CIRRHOSIS ALCOHOLIC
     Route: 048
  6. GLICLAZIDE [Concomitant]
     Indication: DIABETES MELLITUS
     Route: 048
  7. INSULIN ASPART [Concomitant]
     Indication: DIABETES MELLITUS
     Route: 058

REACTIONS (2)
  - FOREARM FRACTURE [None]
  - HEPATIC FUNCTION ABNORMAL [None]
